FAERS Safety Report 22168971 (Version 3)
Quarter: 2023Q2

REPORT INFORMATION
  Report Type: Report from Study
  Country: JP (occurrence: JP)
  Receive Date: 20230403
  Receipt Date: 20230531
  Transmission Date: 20230721
  Serious: Yes (Death, Other)
  Sender: FDA-Public Use
  Company Number: JP-JNJFOC-20230374975

PATIENT
  Age: 66 Year
  Sex: Female
  Weight: 40.4 kg

DRUGS (5)
  1. IMBRUVICA [Suspect]
     Active Substance: IBRUTINIB
     Indication: Chronic lymphocytic leukaemia refractory
     Dosage: IBRUTINIB:140MG
     Route: 048
     Dates: start: 20181012, end: 20181028
  2. IMBRUVICA [Suspect]
     Active Substance: IBRUTINIB
     Indication: Chronic lymphocytic leukaemia refractory
     Dosage: IBRUTINIB:140MG
     Route: 048
     Dates: start: 20181112, end: 20191014
  3. OFATUMUMAB [Concomitant]
     Active Substance: OFATUMUMAB
     Indication: Chronic lymphocytic leukaemia recurrent
     Dosage: DOSE UNKNOWN
     Route: 065
     Dates: start: 20191024, end: 20191107
  4. OFATUMUMAB [Concomitant]
     Active Substance: OFATUMUMAB
     Indication: Chronic lymphocytic leukaemia recurrent
     Dosage: DOSE UNKNOWN
     Route: 065
     Dates: start: 20191024, end: 20191107
  5. OFATUMUMAB [Concomitant]
     Active Substance: OFATUMUMAB
     Indication: Chronic lymphocytic leukaemia recurrent
     Dosage: DOSE UNKNOWN, OFATUMUMAB(GENETICAL RECOMBINATION)
     Route: 065
     Dates: start: 20191024, end: 20191107

REACTIONS (3)
  - Chronic lymphocytic leukaemia [Fatal]
  - Haemolytic anaemia [Fatal]
  - Volvulus [Fatal]

NARRATIVE: CASE EVENT DATE: 20181001
